FAERS Safety Report 9463826 (Version 1)
Quarter: 2013Q3

REPORT INFORMATION
  Report Type: Spontaneous
  Country: FR (occurrence: FR)
  Receive Date: 20130819
  Receipt Date: 20130819
  Transmission Date: 20140515
  Serious: No
  Sender: FDA-Public Use
  Company Number: FR-JNJFOC-20130804842

PATIENT
  Age: 70 Year
  Sex: Female
  Weight: 45 kg

DRUGS (2)
  1. DUROGESIC [Suspect]
     Indication: SPINAL PAIN
     Route: 062
     Dates: start: 2012
  2. INSTANYL [Concomitant]
     Route: 065

REACTIONS (1)
  - Drug prescribing error [Unknown]
